FAERS Safety Report 8471779-7 (Version None)
Quarter: 2012Q2

REPORT INFORMATION
  Report Type: 
  Country: None (occurrence: None)
  Receive Date: 20120627
  Receipt Date: 20120618
  Transmission Date: 20120825
  Serious: Yes (Hospitalization)
  Sender: FDA-Public Use
  Company Number: FR-ASTRAZENECA-2012SE41589

PATIENT
  Sex: Male

DRUGS (9)
  1. DUPHALAC [Suspect]
     Route: 048
  2. OMEPRAZOLE [Suspect]
     Route: 048
  3. ZOLPIDEM [Suspect]
     Route: 048
  4. ALPRAZOLAM [Suspect]
     Route: 048
  5. TADENAN [Concomitant]
  6. PROPRANOLOL [Suspect]
     Indication: HYPERTENSION
     Route: 048
  7. TRIMEBUTINE [Suspect]
     Route: 048
  8. VASTAREL [Suspect]
     Route: 048
  9. MOVIPREP [Suspect]
     Route: 048

REACTIONS (1)
  - PLEURAL EFFUSION [None]
